FAERS Safety Report 17896231 (Version 2)
Quarter: 2020Q3

REPORT INFORMATION
  Report Type: Report from Study
  Country: DE (occurrence: DE)
  Receive Date: 20200615
  Receipt Date: 20200717
  Transmission Date: 20201103
  Serious: Yes (Other)
  Sender: FDA-Public Use
  Company Number: NVSC2020DE165432

PATIENT
  Sex: Female
  Weight: 141 kg

DRUGS (9)
  1. TINCTURE IODINE [Concomitant]
     Indication: PSORIASIS
     Dosage: 10 DRP (AS NEEDED)
     Route: 061
     Dates: start: 2014
  2. PANTOPRAZOLE [Concomitant]
     Active Substance: PANTOPRAZOLE
     Indication: GASTRITIS PROPHYLAXIS
     Dosage: 20 MG
     Route: 048
     Dates: start: 201912
  3. COSENTYX [Suspect]
     Active Substance: SECUKINUMAB
     Indication: PSORIATIC ARTHROPATHY
     Dosage: 300 MG, ONCE/SINGLE
     Route: 065
     Dates: start: 20200512, end: 20200512
  4. L?THYROXINE [Concomitant]
     Active Substance: LEVOTHYROXINE
     Indication: HYPERTHYROIDISM
     Dosage: 175 UG, QD
     Route: 048
     Dates: start: 2002
  5. NOVALGIN [Concomitant]
     Indication: PSORIATIC ARTHROPATHY
     Dosage: 500 MG (AS NEEDED)
     Route: 048
     Dates: start: 2017
  6. IODINE. [Concomitant]
     Active Substance: IODINE
     Indication: PROPHYLAXIS
     Dosage: 200 UG, QD
     Route: 048
     Dates: start: 2002
  7. METHOTREXATE. [Concomitant]
     Active Substance: METHOTREXATE
     Indication: PSORIATIC ARTHROPATHY
     Dosage: 17.5 MG, QD
     Route: 058
     Dates: start: 20200229
  8. NEBIVOLOL. [Concomitant]
     Active Substance: NEBIVOLOL
     Dosage: 5 MG, UNKNOWN
     Route: 048
     Dates: start: 20200504
  9. NEBIVOLOL. [Concomitant]
     Active Substance: NEBIVOLOL
     Indication: HYPERTHYROIDISM
     Dosage: 2.5 MG, QD
     Route: 048
     Dates: start: 2017, end: 20200503

REACTIONS (2)
  - Salpingo-oophoritis [Recovered/Resolved]
  - C-reactive protein [Unknown]

NARRATIVE: CASE EVENT DATE: 20200522
